FAERS Safety Report 14192597 (Version 3)
Quarter: 2017Q4

REPORT INFORMATION
  Report Type: Spontaneous
  Country: US (occurrence: US)
  Receive Date: 20171115
  Receipt Date: 20171201
  Transmission Date: 20180321
  Serious: Yes (Death)
  Sender: FDA-Public Use
  Company Number: US-CELGENEUS-USA-20171104727

PATIENT
  Age: 83 Year
  Sex: Female

DRUGS (4)
  1. THALOMID [Suspect]
     Active Substance: THALIDOMIDE
     Indication: CUTANEOUS LUPUS ERYTHEMATOSUS
     Dosage: 50 MILLIGRAM
     Route: 048
     Dates: start: 200301
  2. THALOMID [Suspect]
     Active Substance: THALIDOMIDE
     Dosage: 50 MILLIGRAM
     Route: 048
     Dates: start: 201508
  3. THALOMID [Suspect]
     Active Substance: THALIDOMIDE
     Indication: SUBACUTE CUTANEOUS LUPUS ERYTHEMATOSUS
     Dosage: 50 MILLIGRAM
     Route: 048
     Dates: start: 201307
  4. THALOMID [Suspect]
     Active Substance: THALIDOMIDE
     Dosage: 50 MILLIGRAM
     Route: 048
     Dates: start: 201311

REACTIONS (1)
  - Cerebrovascular accident [Fatal]

NARRATIVE: CASE EVENT DATE: 20171027
